FAERS Safety Report 5024179-6 (Version None)
Quarter: 2006Q2

REPORT INFORMATION
  Report Type: 
  Country: None (occurrence: None)
  Receive Date: 20060607
  Receipt Date: 20060603
  Transmission Date: 20061013
  Serious: Yes (Hospitalization)
  Sender: FDA-Public Use
  Company Number: 219200

PATIENT
  Age: 63 Year
  Sex: Female

DRUGS (5)
  1. AVASTIN [Suspect]
     Indication: RENAL CELL CARCINOMA STAGE UNSPECIFIED
     Dosage: 7.5 MG, Q3W
     Dates: start: 20050107, end: 20050929
  2. MIRTAZAPINE [Concomitant]
  3. ZOPICLONE (ZOPICLONE) [Concomitant]
  4. BISOPROLOL FUMARATE [Concomitant]
  5. NIFEDIPINE [Concomitant]

REACTIONS (3)
  - ERYTHEMA MULTIFORME [None]
  - INFECTION [None]
  - NO REACTION ON PREVIOUS EXPOSURE TO DRUG [None]
